FAERS Safety Report 10232668 (Version 1)
Quarter: 2014Q2

REPORT INFORMATION
  Report Type: Report from Study
  Country: US (occurrence: US)
  Receive Date: 20140612
  Receipt Date: 20140612
  Transmission Date: 20141212
  Serious: Yes (Hospitalization)
  Sender: FDA-Public Use
  Company Number: US-JNJFOC-20140604104

PATIENT
  Age: 14 Year
  Sex: Female
  Weight: 97 kg

DRUGS (9)
  1. REMICADE [Suspect]
     Indication: CROHN^S DISEASE
     Route: 042
     Dates: start: 20091021
  2. METHOTREXATE [Concomitant]
     Route: 065
  3. BUDESONIDE [Concomitant]
     Route: 065
  4. FOLIC ACID [Concomitant]
     Route: 065
  5. FERROUS SULPHATE [Concomitant]
     Route: 065
  6. LEXAPRO [Concomitant]
     Route: 065
  7. ZOFRAN [Concomitant]
     Route: 065
  8. VITAMIN D [Concomitant]
     Route: 065
  9. OMEPRAZOLE [Concomitant]
     Route: 065

REACTIONS (1)
  - Crohn^s disease [Recovered/Resolved]
